FAERS Safety Report 4278992-3 (Version None)
Quarter: 2004Q1

REPORT INFORMATION
  Report Type: 
  Country: None (occurrence: None)
  Receive Date: 20040126
  Receipt Date: 20030620
  Transmission Date: 20041129
  Serious: Yes (Hospitalization)
  Sender: FDA-Public Use
  Company Number: WAES 0306CHE00020

PATIENT
  Age: 29 Year
  Sex: Female

DRUGS (3)
  1. VIOXX [Suspect]
     Indication: WHIPLASH INJURY
     Route: 048
     Dates: start: 20030521, end: 20030526
  2. TIZANIDINE HYDROCHLORIDE [Suspect]
     Indication: WHIPLASH INJURY
     Route: 048
     Dates: start: 20030521, end: 20030526
  3. TRAMADOL HYDROCHLORIDE [Suspect]
     Indication: WHIPLASH INJURY
     Route: 048
     Dates: start: 20030521, end: 20030526

REACTIONS (1)
  - BRADYCARDIA [None]
